FAERS Safety Report 12096807 (Version 4)
Quarter: 2022Q4

REPORT INFORMATION
  Report Type: Spontaneous
  Country: US (occurrence: US)
  Receive Date: 20160220
  Receipt Date: 20221020
  Transmission Date: 20230113
  Serious: Yes (Hospitalization, Other)
  Sender: FDA-Public Use
  Company Number: US-ACORDA-ACO_108922_2015

PATIENT
  Sex: Female

DRUGS (8)
  1. AMPYRA [Suspect]
     Active Substance: DALFAMPRIDINE
     Indication: Multiple sclerosis
     Dosage: 10 MILLIGRAM, BID
     Route: 048
     Dates: start: 201401
  2. AMPYRA [Suspect]
     Active Substance: DALFAMPRIDINE
     Indication: Gait disturbance
  3. AVONEX [Suspect]
     Active Substance: INTERFERON BETA-1A
     Indication: Multiple sclerosis
     Dosage: 30 MICROGRAM, WEEKLY
     Route: 030
     Dates: start: 20150113
  4. AVONEX [Suspect]
     Active Substance: INTERFERON BETA-1A
     Dosage: 30 MCG, WEEKLY
     Route: 030
     Dates: start: 20001203, end: 20150101
  5. AVONEX [Suspect]
     Active Substance: INTERFERON BETA-1A
     Dosage: UNK
     Route: 065
     Dates: start: 20001203, end: 20141223
  6. ESTROGENS [Suspect]
     Active Substance: ESTROGENS
     Indication: Breast cancer
     Dosage: UNK
     Route: 065
  7. PLEGRIDY [Suspect]
     Active Substance: PEGINTERFERON BETA-1A
     Indication: Multiple sclerosis
     Dosage: 125 MICROGRAM, ONCE IN 14 DAYS
     Route: 065
     Dates: start: 20150114
  8. PLEGRIDY [Suspect]
     Active Substance: PEGINTERFERON BETA-1A
     Dosage: 125 MICROGRAM, ONCE IN 14 DAYS
     Route: 058
     Dates: start: 2014

REACTIONS (7)
  - Breast cancer stage I [Unknown]
  - Myalgia [Recovered/Resolved]
  - Hypoaesthesia [Recovered/Resolved]
  - Fall [Unknown]
  - Head injury [Unknown]
  - Motor dysfunction [Not Recovered/Not Resolved]
  - Muscular weakness [Unknown]

NARRATIVE: CASE EVENT DATE: 20140101
